FAERS Safety Report 8021981-3 (Version None)
Quarter: 2011Q4

REPORT INFORMATION
  Report Type: 
  Country: None (occurrence: None)
  Receive Date: 20111230
  Receipt Date: 20111220
  Transmission Date: 20120403
  Serious: Yes (Disabling, Other)
  Sender: FDA-Public Use
  Company Number: 1000026499

PATIENT
  Sex: Female

DRUGS (2)
  1. SAVELLA [Suspect]
  2. LYRICA [Suspect]
     Dosage: 75 MG (75 MG, 1 IN 1D)
     Dates: start: 20111001, end: 20111101

REACTIONS (5)
  - HYPOACUSIS [None]
  - DRUG INEFFECTIVE [None]
  - DYSPHAGIA [None]
  - OESOPHAGEAL STENOSIS [None]
  - THROAT TIGHTNESS [None]
